FAERS Safety Report 9581945 (Version 2)
Quarter: 2013Q4

REPORT INFORMATION
  Report Type: Spontaneous
  Country: US (occurrence: US)
  Receive Date: 20131002
  Receipt Date: 20131008
  Transmission Date: 20140711
  Serious: Yes (Other)
  Sender: FDA-Public Use
  Company Number: US-PFIZER INC-2013278376

PATIENT
  Sex: Female

DRUGS (5)
  1. IBUPROFEN [Suspect]
     Indication: POLYARTHRITIS
     Dosage: UNK
  2. ASPIRIN [Suspect]
     Indication: JUVENILE IDIOPATHIC ARTHRITIS
     Dosage: HIGH DOSES
  3. TOLMETIN [Suspect]
     Indication: JUVENILE IDIOPATHIC ARTHRITIS
     Dosage: 800 MG, DAILY
  4. GOLD SODIUM THIOMALATE [Concomitant]
     Indication: JUVENILE IDIOPATHIC ARTHRITIS
     Dosage: UNK
  5. PREDNISONE [Concomitant]
     Indication: JUVENILE IDIOPATHIC ARTHRITIS
     Dosage: 5 MG, DAILY

REACTIONS (1)
  - Renal papillary necrosis [Unknown]
